FAERS Safety Report 23281739 (Version 1)
Quarter: 2023Q4

REPORT INFORMATION
  Report Type: Spontaneous
  Country: SG (occurrence: SG)
  Receive Date: 20231211
  Receipt Date: 20231211
  Transmission Date: 20240110
  Serious: Yes (Death, Other)
  Sender: FDA-Public Use
  Company Number: SG-DSJP-DSJ-2023-150989

PATIENT
  Age: 70 Year
  Sex: Female

DRUGS (4)
  1. EDOXABAN [Suspect]
     Active Substance: EDOXABAN
     Indication: Atrial fibrillation
     Dosage: 60 MG
     Route: 048
     Dates: start: 202210
  2. EDOXABAN [Suspect]
     Active Substance: EDOXABAN
     Dosage: 30 MG, QD
     Route: 048
     Dates: start: 202210, end: 202311
  3. SOTALOL [Concomitant]
     Active Substance: SOTALOL
     Indication: Blood pressure measurement
     Dosage: UNK
     Route: 065
  4. COZAAR [Concomitant]
     Active Substance: LOSARTAN POTASSIUM
     Indication: Blood pressure measurement
     Dosage: UNK
     Route: 065

REACTIONS (2)
  - Cerebral haemorrhage [Fatal]
  - Death [Fatal]
